FAERS Safety Report 7642366-5 (Version None)
Quarter: 2011Q3

REPORT INFORMATION
  Report Type: 
  Country: None (occurrence: None)
  Receive Date: 20110722
  Receipt Date: 20110717
  Transmission Date: 20111222
  Serious: Yes (Other)
  Sender: FDA-Public Use
  Company Number: 2011SP005112

PATIENT
  Age: 49 Year
  Sex: Female
  Weight: 190 kg

DRUGS (3)
  1. LEVOTHYROXINE SODIUM [Concomitant]
  2. IMPLANON [Suspect]
     Indication: PRODUCT USED FOR UNKNOWN INDICATION
     Dates: start: 20090211, end: 20110128
  3. CADUET [Concomitant]

REACTIONS (3)
  - OESTROGEN RECEPTOR ASSAY POSITIVE [None]
  - BREAST CANCER IN SITU [None]
  - PROGESTERONE RECEPTOR ASSAY POSITIVE [None]
